FAERS Safety Report 8905676 (Version 2)
Quarter: 2012Q4

REPORT INFORMATION
  Report Type: Report from Study
  Country: JP (occurrence: JP)
  Receive Date: 20121113
  Receipt Date: 20121203
  Transmission Date: 20130627
  Serious: Yes (Death)
  Sender: FDA-Public Use
  Company Number: JP-B.I. PHARMACEUTICALS,INC./RIDGEFIELD-2012-BI-00011NB

PATIENT
  Age: 82 Year
  Sex: Female

DRUGS (5)
  1. MICAMLO COMBINATION [Suspect]
     Indication: HYPERTENSION
     Route: 048
     Dates: start: 20111110, end: 20120901
  2. ARICEPT [Concomitant]
     Indication: DEMENTIA
     Dosage: 5 mg
     Route: 048
     Dates: end: 20120901
  3. MEMARY [Concomitant]
     Dosage: 20 mg
     Route: 048
     Dates: end: 20120901
  4. MICARDIS [Concomitant]
     Indication: HYPERTENSION
     Dosage: 40 mg
     Route: 065
  5. AMLODIPINE [Concomitant]
     Indication: HYPERTENSION
     Dosage: 2.5 mg
     Route: 065

REACTIONS (2)
  - Cardiac failure [Fatal]
  - Dementia [Fatal]
